FAERS Safety Report 6084409-9 (Version None)
Quarter: 2009Q1

REPORT INFORMATION
  Report Type: 
  Country: None (occurrence: None)
  Receive Date: 20090219
  Receipt Date: 20090216
  Transmission Date: 20090719
  Serious: Yes (Other)
  Sender: FDA-Public Use
  Company Number: A0769395A

PATIENT
  Age: 34 Year
  Sex: Female
  Weight: 71 kg

DRUGS (1)
  1. AROPAX [Suspect]
     Dates: start: 20090212, end: 20090212

REACTIONS (4)
  - DIARRHOEA [None]
  - HALLUCINATION [None]
  - MUSCULAR WEAKNESS [None]
  - VOMITING [None]
